FAERS Safety Report 5557944-7 (Version None)
Quarter: 2007Q4

REPORT INFORMATION
  Report Type: 
  Country: None (occurrence: None)
  Receive Date: 20071214
  Receipt Date: 20070417
  Transmission Date: 20080405
  Serious: Yes (Hospitalization)
  Sender: FDA-Public Use
  Company Number: FR-ROCHE-493600

PATIENT
  Age: 66 Year
  Sex: Female
  Weight: 80 kg

DRUGS (6)
  1. PEG-INTERFERON ALFA 2A (RO 25-8310) [Suspect]
     Dosage: FORM: SYRINGE.
     Route: 058
     Dates: start: 20040109, end: 20040205
  2. PEG-INTERFERON ALFA 2A (RO 25-8310) [Suspect]
     Dosage: FORM: SYRINGE.
     Route: 058
     Dates: start: 20040206, end: 20040716
  3. TARDYFERON [Concomitant]
     Dates: start: 20040101
  4. DAFLON [Concomitant]
     Dates: start: 20040101
  5. MOPRAL [Concomitant]
     Dates: start: 20040101
  6. TRAMADOL HCL [Concomitant]
     Dates: start: 20040101

REACTIONS (4)
  - ARTHRITIS [None]
  - CARPAL TUNNEL SYNDROME [None]
  - COMPLEX REGIONAL PAIN SYNDROME [None]
  - ERYSIPELAS [None]
